FAERS Safety Report 4412493-4 (Version None)
Quarter: 2004Q2

REPORT INFORMATION
  Report Type: 
  Country: None (occurrence: None)
  Receive Date: 20040630
  Receipt Date: 20040428
  Transmission Date: 20050107
  Serious: No
  Sender: FDA-Public Use
  Company Number: 04P-163-0255899-00

PATIENT
  Age: 64 Year
  Sex: Female
  Weight: 72.5755 kg

DRUGS (13)
  1. HUMIRA [Suspect]
     Indication: RHEUMATOID ARTHRITIS
     Dosage: SEE IMAGE
     Route: 058
     Dates: start: 20031126, end: 20040201
  2. HUMIRA [Suspect]
     Indication: RHEUMATOID ARTHRITIS
     Dosage: SEE IMAGE
     Route: 058
     Dates: start: 20040201, end: 20040301
  3. HUMIRA [Suspect]
     Indication: RHEUMATOID ARTHRITIS
     Dosage: SEE IMAGE
     Route: 058
     Dates: start: 20040301
  4. LANSOPRAZOLE [Concomitant]
  5. LEVOTHYROXINE SODIUM [Concomitant]
  6. MULTIVITAMIN [Concomitant]
  7. FISH OIL [Concomitant]
  8. TOCOPHEROL CONCENTRATE CAP [Concomitant]
  9. ASCORBIC ACID [Concomitant]
  10. MULTI-VITAMINS [Concomitant]
  11. CYANOCOBALAMIN [Concomitant]
  12. FOLIC ACID [Concomitant]
  13. FISH OIL [Concomitant]

REACTIONS (4)
  - DIPLOPIA [None]
  - EXTRAOCULAR MUSCLE PARESIS [None]
  - NASOPHARYNGITIS [None]
  - SINUS DISORDER [None]
